FAERS Safety Report 25999904 (Version 2)
Quarter: 2025Q4

REPORT INFORMATION
  Report Type: Spontaneous
  Country: US (occurrence: US)
  Receive Date: 20251105
  Receipt Date: 20251113
  Transmission Date: 20260118
  Serious: Yes (Life-Threatening, Hospitalization)
  Sender: TEVA
  Company Number: US-TEVA-VS-3387209

PATIENT
  Age: 38 Year
  Sex: Male

DRUGS (2)
  1. FENTANYL [Suspect]
     Active Substance: FENTANYL
     Indication: Product used for unknown indication
     Route: 065
  2. AMANTADINE [Suspect]
     Active Substance: AMANTADINE
     Indication: Confusional state
     Route: 065

REACTIONS (8)
  - Cardiac arrest [Recovering/Resolving]
  - Overdose [Unknown]
  - Brain injury [Recovering/Resolving]
  - Confusional state [Recovering/Resolving]
  - Therapy non-responder [Unknown]
  - Disorientation [Recovering/Resolving]
  - Disturbance in attention [Recovering/Resolving]
  - Loss of personal independence in daily activities [Recovering/Resolving]
